FAERS Safety Report 7454643-1 (Version None)
Quarter: 2011Q2

REPORT INFORMATION
  Report Type: 
  Country: None (occurrence: None)
  Receive Date: 20110503
  Receipt Date: 20100428
  Transmission Date: 20111010
  Serious: No
  Sender: FDA-Public Use
  Company Number: US-PFIZER INC-2010039383

PATIENT
  Sex: Female
  Weight: 66 kg

DRUGS (1)
  1. DEPO-PROVERA [Suspect]
     Indication: CONTRACEPTION
     Dosage: 150 MG/ML, EVERY 3 MONTHS
     Route: 030
     Dates: start: 20090101

REACTIONS (1)
  - MENORRHAGIA [None]
